FAERS Safety Report 25332014 (Version 1)
Quarter: 2025Q2

REPORT INFORMATION
  Report Type: Spontaneous
  Country: US (occurrence: None)
  Receive Date: 20250517
  Receipt Date: 20250517
  Transmission Date: 20250717
  Serious: Yes (Other)
  Sender: FDA-CTU
  Company Number: None

PATIENT
  Age: 85 Year
  Sex: Female
  Weight: 51.71 kg

DRUGS (11)
  1. FUROSCIX [Suspect]
     Active Substance: FUROSEMIDE
     Indication: Chronic kidney disease
     Dosage: FREQUENCY : DAILY;?
     Route: 058
  2. CALCIUM [Concomitant]
     Active Substance: CALCIUM
  3. FT Vitamin D3 [Concomitant]
  4. CVS Vitamin E Oral [Concomitant]
  5. Centrum Adults [Concomitant]
  6. HYDRALAZINE HCL [Concomitant]
     Active Substance: HYDRALAZINE HYDROCHLORIDE
  7. ASPIRIN [Concomitant]
     Active Substance: ASPIRIN
  8. PROPRANOLOL [Concomitant]
     Active Substance: PROPRANOLOL HYDROCHLORIDE
  9. AVAPRO [Concomitant]
     Active Substance: IRBESARTAN
  10. PREDNISONE [Concomitant]
     Active Substance: PREDNISONE
  11. FOLIC ACID [Concomitant]
     Active Substance: FOLIC ACID

REACTIONS (1)
  - Oedema peripheral [None]

NARRATIVE: CASE EVENT DATE: 20250516
